FAERS Safety Report 18437857 (Version 1)
Quarter: 2020Q4

REPORT INFORMATION
  Report Type: Spontaneous
  Country: GB (occurrence: GB)
  Receive Date: 20201028
  Receipt Date: 20201028
  Transmission Date: 20210114
  Serious: Yes (Other)
  Sender: FDA-Public Use
  Company Number: GB-009507513-2010GBR010240

PATIENT
  Sex: Female

DRUGS (3)
  1. REZOLSTA [Suspect]
     Active Substance: COBICISTAT\DARUNAVIR ETHANOLATE
     Dosage: 950 MILLIGRAM, UNK
  2. INTELENCE [Suspect]
     Active Substance: ETRAVIRINE
     Dosage: 800 MILLIGRAM, UNK
  3. ISENTRESS [Suspect]
     Active Substance: RALTEGRAVIR POTASSIUM
     Dosage: 100 MILLIGRAM, UNK
     Route: 048

REACTIONS (2)
  - Chest discomfort [Unknown]
  - Lower respiratory tract infection [Unknown]
